FAERS Safety Report 10962355 (Version 1)
Quarter: 2015Q1

REPORT INFORMATION
  Report Type: Spontaneous
  Country: NL (occurrence: US)
  Receive Date: 20150327
  Receipt Date: 20150327
  Transmission Date: 20150721
  Serious: Yes (Disabling, Other)
  Sender: FDA-Public Use
  Company Number: NL-APOTEX-2015AP007731

PATIENT
  Sex: Male

DRUGS (1)
  1. PAXIL [Suspect]
     Active Substance: PAROXETINE HYDROCHLORIDE
     Indication: PRODUCT USED FOR UNKNOWN INDICATION
     Dosage: UNK
     Route: 065
     Dates: start: 1997, end: 2012

REACTIONS (9)
  - Diabetes mellitus [Unknown]
  - Ill-defined disorder [Unknown]
  - Cardiac disorder [Unknown]
  - Hypertension [Unknown]
  - Disability [Unknown]
  - Bone disorder [Unknown]
  - General physical health deterioration [Unknown]
  - Blindness [Unknown]
  - Seizure [Unknown]
